FAERS Safety Report 5162242-X (Version None)
Quarter: 2006Q4

REPORT INFORMATION
  Report Type: 
  Country: None (occurrence: None)
  Receive Date: 20061121
  Receipt Date: 20061106
  Transmission Date: 20070319
  Serious: Yes (Hospitalization)
  Sender: FDA-Public Use
  Company Number: PAR_1093_2006

PATIENT
  Age: 69 Year
  Sex: Female

DRUGS (13)
  1. IBUPROFEN [Suspect]
     Dosage: DF PO
     Route: 048
     Dates: start: 20060728, end: 20060730
  2. ALEVE [Suspect]
     Indication: ARTHRALGIA
     Dosage: 220 MG BID PO
     Route: 048
     Dates: start: 20060712, end: 20060723
  3. ALEVE [Suspect]
     Indication: INFLAMMATION
     Dosage: 220 MG BID PO
     Route: 048
     Dates: start: 20060712, end: 20060723
  4. ALEVE [Suspect]
     Indication: ARTHRALGIA
     Dosage: 220 MG QDAY PO
     Route: 048
     Dates: start: 20060924
  5. ALEVE [Suspect]
     Indication: INFLAMMATION
     Dosage: 220 MG QDAY PO
     Route: 048
     Dates: start: 20060924
  6. KEPPRA [Concomitant]
  7. FOSAMAX [Concomitant]
  8. EVISTA [Concomitant]
  9. CELEXA [Concomitant]
  10. MULTI-VITAMIN [Concomitant]
  11. CALTRATE +D [Concomitant]
  12. ASPIRIN [Concomitant]
  13. GAS X [Concomitant]

REACTIONS (16)
  - ANOREXIA [None]
  - ARTHRALGIA [None]
  - ERYTHEMA [None]
  - HALLUCINATION [None]
  - HEADACHE [None]
  - HEPATOCELLULAR DAMAGE [None]
  - JAUNDICE [None]
  - NAUSEA [None]
  - PYREXIA [None]
  - RASH [None]
  - RASH PRURITIC [None]
  - RED BLOOD CELL COUNT DECREASED [None]
  - SNEEZING [None]
  - SWELLING [None]
  - VIRAL INFECTION [None]
  - WHITE BLOOD CELL COUNT INCREASED [None]
